FAERS Safety Report 23581421 (Version 3)
Quarter: 2024Q2

REPORT INFORMATION
  Report Type: Spontaneous
  Country: US (occurrence: US)
  Receive Date: 20240229
  Receipt Date: 20240417
  Transmission Date: 20240716
  Serious: Yes (Other)
  Sender: FDA-Public Use
  Company Number: US-PFIZER INC-202400052155

PATIENT
  Age: 71 Year
  Sex: Male
  Weight: 68.027 kg

DRUGS (6)
  1. TIKOSYN [Suspect]
     Active Substance: DOFETILIDE
     Indication: Arrhythmia
     Dosage: 500 MG
  2. TIKOSYN [Suspect]
     Active Substance: DOFETILIDE
     Indication: Atrial fibrillation
     Dosage: 375 UG, 2X/DAY
     Dates: start: 20231220
  3. TIKOSYN [Suspect]
     Active Substance: DOFETILIDE
     Indication: Atrial flutter
  4. DILTIAZEM [Concomitant]
     Active Substance: DILTIAZEM
     Dosage: 120 MG, 2X/DAY
     Dates: start: 20231220, end: 20240312
  5. PROPRANOLOL [Concomitant]
     Active Substance: PROPRANOLOL HYDROCHLORIDE
     Dosage: 60 MG, 2X/DAY
     Dates: start: 20240312
  6. DOFETILIDE [Concomitant]
     Active Substance: DOFETILIDE
     Dosage: UNK

REACTIONS (1)
  - Arrhythmia [Not Recovered/Not Resolved]
